FAERS Safety Report 10452141 (Version 1)
Quarter: 2014Q3

REPORT INFORMATION
  Report Type: Spontaneous
  Country: US (occurrence: None)
  Receive Date: 20140912
  Receipt Date: 20140912
  Transmission Date: 20150326
  Serious: Yes (Other)
  Sender: FDA-Public Use
  Company Number: None

PATIENT
  Age: 59 Year
  Sex: Female

DRUGS (6)
  1. DIOVAN HCT [Concomitant]
     Active Substance: HYDROCHLOROTHIAZIDE\VALSARTAN
  2. MIRAPEX ER [Suspect]
     Active Substance: PRAMIPEXOLE DIHYDROCHLORIDE
     Dosage: 1 TABLET, QD, 1 DAY
  3. CYMBALTA [Concomitant]
     Active Substance: DULOXETINE HYDROCHLORIDE
  4. VITAMIN D [Concomitant]
     Active Substance: CHOLECALCIFEROL
  5. VITAMIN B12 [Concomitant]
     Active Substance: CYANOCOBALAMIN
  6. XANAX [Concomitant]
     Active Substance: ALPRAZOLAM

REACTIONS (11)
  - Dizziness [None]
  - Oesophageal disorder [None]
  - Headache [None]
  - Choking [None]
  - Nightmare [None]
  - Dyspnoea [None]
  - Eye swelling [None]
  - Sleep disorder [None]
  - Night sweats [None]
  - Dry mouth [None]
  - Swelling face [None]

NARRATIVE: CASE EVENT DATE: 20140815
